FAERS Safety Report 7260749-2 (Version None)
Quarter: 2011Q1

REPORT INFORMATION
  Report Type: 
  Country: None (occurrence: None)
  Receive Date: 20110130
  Receipt Date: 20101222
  Transmission Date: 20110831
  Serious: No
  Sender: FDA-Public Use
  Company Number: US-ABBOTT-10P-163-0693448-00

PATIENT
  Age: 60 Year
  Sex: Female

DRUGS (9)
  1. VIT D [Concomitant]
     Indication: PRODUCT USED FOR UNKNOWN INDICATION
  2. HUMIRA [Suspect]
     Indication: CROHN'S DISEASE
     Dosage: DAY 1
     Dates: start: 20101210
  3. VICODIN [Concomitant]
     Indication: PRODUCT USED FOR UNKNOWN INDICATION
     Dosage: 5/325MG, 2 TO 6 PER DAY
  4. PREDNISONE [Concomitant]
     Dosage: DAILY;HAS BEEN TAPERING OFF 10MG PER WEEK
  5. HUMIRA [Suspect]
     Dosage: DAY 15
  6. HUMIRA [Suspect]
  7. WELLBUTRIN [Concomitant]
     Indication: PRODUCT USED FOR UNKNOWN INDICATION
  8. PREDNISONE [Concomitant]
     Indication: PRODUCT USED FOR UNKNOWN INDICATION
  9. VIT B12 [Concomitant]
     Indication: PRODUCT USED FOR UNKNOWN INDICATION
     Dosage: MONTHLY

REACTIONS (2)
  - FATIGUE [None]
  - WHITE BLOOD CELL COUNT INCREASED [None]
